FAERS Safety Report 19223898 (Version 1)
Quarter: 2021Q2

REPORT INFORMATION
  Report Type: Spontaneous
  Country: US (occurrence: US)
  Receive Date: 20210506
  Receipt Date: 20210506
  Transmission Date: 20210717
  Serious: No
  Sender: FDA-Public Use
  Company Number: US-BIOGEN-2021BI01006995

PATIENT
  Sex: Male

DRUGS (1)
  1. TECFIDERA [Suspect]
     Active Substance: DIMETHYL FUMARATE
     Indication: MULTIPLE SCLEROSIS
     Route: 065

REACTIONS (9)
  - Paraesthesia [Unknown]
  - Cognitive disorder [Recovered/Resolved]
  - Insomnia [Unknown]
  - Tremor [Unknown]
  - Drug ineffective [Recovered/Resolved]
  - Muscle spasms [Unknown]
  - Pain [Unknown]
  - Time perception altered [Recovered/Resolved]
  - Migraine [Unknown]
